FAERS Safety Report 16154880 (Version 1)
Quarter: 2019Q2

REPORT INFORMATION
  Report Type: Spontaneous
  Country: FR (occurrence: FR)
  Receive Date: 20190403
  Receipt Date: 20190403
  Transmission Date: 20190711
  Serious: Yes (Other)
  Sender: FDA-Public Use
  Company Number: FR-TEVA-2019-FR-1033197

PATIENT
  Age: 72 Year
  Sex: Female

DRUGS (3)
  1. CELIPROLOL [Suspect]
     Active Substance: CELIPROLOL
     Indication: HYPERTENSION
     Dosage: NON COMMUNIQUEE
     Route: 065
  2. SPIRONOLACTONE. [Suspect]
     Active Substance: SPIRONOLACTONE
     Indication: HYPERTENSION
     Dosage: NON COMMUNIQUEE
     Route: 065
  3. ALTIZIDE [Suspect]
     Active Substance: ALTHIAZIDE
     Indication: HYPERTENSION
     Dosage: NON COMMUNIQUEE
     Route: 048

REACTIONS (1)
  - Conductive deafness [Not Recovered/Not Resolved]
